FAERS Safety Report 5951817-3 (Version None)
Quarter: 2008Q4

REPORT INFORMATION
  Report Type: 
  Country: None (occurrence: None)
  Receive Date: 20081113
  Receipt Date: 20081103
  Transmission Date: 20090506
  Serious: Yes (Hospitalization)
  Sender: FDA-Public Use
  Company Number: B0512629A

PATIENT
  Age: 18 Year
  Sex: Female

DRUGS (2)
  1. LAMICTAL [Suspect]
     Indication: EPILEPSY
     Route: 048
     Dates: start: 20080205, end: 20080222
  2. URBANYL [Concomitant]
     Indication: EPILEPSY
     Route: 048
     Dates: start: 20071201, end: 20080215

REACTIONS (14)
  - ARTHRALGIA [None]
  - C-REACTIVE PROTEIN INCREASED [None]
  - INFLAMMATION [None]
  - LEUKOCYTOSIS [None]
  - LUPUS-LIKE SYNDROME [None]
  - LYMPHADENOPATHY [None]
  - MOTOR DYSFUNCTION [None]
  - MUSCULAR WEAKNESS [None]
  - MYALGIA [None]
  - OROPHARYNGEAL PAIN [None]
  - PERICARDITIS [None]
  - PYREXIA [None]
  - RASH MACULAR [None]
  - RED BLOOD CELL SEDIMENTATION RATE INCREASED [None]
